FAERS Safety Report 22650534 (Version 1)
Quarter: 2023Q2

REPORT INFORMATION
  Report Type: Spontaneous
  Country: CA (occurrence: None)
  Receive Date: 20230627
  Receipt Date: 20230627
  Transmission Date: 20230722
  Serious: Yes (Hospitalization, Other)
  Sender: FDA-Public Use
  Company Number: None

PATIENT
  Age: 38 Year
  Sex: Female
  Weight: 48.15 kg

DRUGS (1)
  1. CLONAZEPAM [Suspect]
     Active Substance: CLONAZEPAM
     Indication: Product used for unknown indication
     Dosage: OTHER QUANTITY : 1 TABLET(S);?FREQUENCY : TWICE A DAY;?
     Route: 048

REACTIONS (11)
  - Dizziness [None]
  - Somnolence [None]
  - Dyspnoea [None]
  - Paralysis [None]
  - Unresponsive to stimuli [None]
  - Head titubation [None]
  - Memory impairment [None]
  - Disturbance in attention [None]
  - Peripheral swelling [None]
  - Pain in extremity [None]
  - Ill-defined disorder [None]

NARRATIVE: CASE EVENT DATE: 20230620
